FAERS Safety Report 5144343-5 (Version None)
Quarter: 2006Q4

REPORT INFORMATION
  Report Type: 
  Country: None (occurrence: None)
  Receive Date: 20061106
  Receipt Date: 20051115
  Transmission Date: 20070319
  Serious: Yes (Hospitalization, Other)
  Sender: FDA-Public Use
  Company Number: DE-PURDUE-DEU_2005_0001791

PATIENT
  Age: 49 Year
  Sex: Female

DRUGS (7)
  1. OXYGESIC [Suspect]
     Indication: PAIN
     Dosage: 40 MG, TID
     Route: 048
     Dates: start: 20030101
  2. OXYGESIC [Suspect]
     Dosage: 30 MG, TID
     Route: 048
     Dates: start: 20030101
  3. OXYGESIC [Suspect]
     Dosage: 20 MG, TID
     Route: 048
     Dates: start: 19970101, end: 20030101
  4. ANTIBIOTICS [Concomitant]
     Route: 048
  5. SEVREDOL [Suspect]
     Indication: PAIN
     Dosage: 20 MG, PRN
     Route: 048
     Dates: start: 20030101, end: 20030101
  6. SEVREDOL [Suspect]
     Route: 048
     Dates: start: 20030101
  7. LAXOBERAL ^BOEHRINGER INGELHEIM^ [Concomitant]

REACTIONS (10)
  - ABDOMINAL DISTENSION [None]
  - CONSTIPATION [None]
  - DECREASED APPETITE [None]
  - DRUG WITHDRAWAL SYNDROME [None]
  - DRY SKIN [None]
  - DYSPEPSIA [None]
  - FLATULENCE [None]
  - GASTRIC DISORDER [None]
  - URINARY RETENTION [None]
  - URINARY TRACT INFECTION [None]
